FAERS Safety Report 6812844-7 (Version None)
Quarter: 2010Q3

REPORT INFORMATION
  Report Type: 
  Country: None (occurrence: None)
  Receive Date: 20100701
  Receipt Date: 20100622
  Transmission Date: 20110219
  Serious: Yes (Other)
  Sender: FDA-Public Use
  Company Number: US-JNJFOC-20100607172

PATIENT
  Sex: Male
  Weight: 65.77 kg

DRUGS (2)
  1. FENTANYL-100 [Suspect]
     Indication: PAIN
     Route: 062
  2. DURAGESIC-100 [Suspect]
     Indication: PAIN
     Route: 062

REACTIONS (6)
  - APPLICATION SITE RASH [None]
  - APPLICATION SITE REACTION [None]
  - CROHN'S DISEASE [None]
  - DEVICE LEAKAGE [None]
  - HYPERHIDROSIS [None]
  - PRODUCT ADHESION ISSUE [None]
